FAERS Safety Report 26139588 (Version 2)
Quarter: 2025Q4

REPORT INFORMATION
  Report Type: Spontaneous
  Country: US (occurrence: US)
  Receive Date: 20251210
  Receipt Date: 20251219
  Transmission Date: 20260118
  Serious: No
  Sender: GILEAD
  Company Number: US-GILEAD-2025-0740034

PATIENT
  Age: 50 Year
  Sex: Male

DRUGS (2)
  1. YEZTUGO [Suspect]
     Active Substance: LENACAPAVIR SODIUM
     Indication: Product used for unknown indication
     Route: 065
  2. YEZTUGO [Suspect]
     Active Substance: LENACAPAVIR SODIUM
     Indication: Product used for unknown indication
     Route: 065

REACTIONS (2)
  - Injection site pain [Recovered/Resolved]
  - Wrong technique in product usage process [Not Recovered/Not Resolved]

NARRATIVE: CASE EVENT DATE: 20251202
